FAERS Safety Report 19620591 (Version 1)
Quarter: 2021Q3

REPORT INFORMATION
  Report Type: Spontaneous
  Country: US (occurrence: US)
  Receive Date: 20210728
  Receipt Date: 20210728
  Transmission Date: 20211014
  Serious: Yes (Other)
  Sender: FDA-Public Use
  Company Number: US-NOVEN PHARMACEUTICALS, INC.-2020US005497

PATIENT
  Sex: Female
  Weight: 62.13 kg

DRUGS (2)
  1. ADVIL 12 HOUR [Concomitant]
     Active Substance: IBUPROFEN
     Dosage: DOSE UNKNOWN, FREQUENCY AS NEEDED
     Route: 065
  2. COMBIPATCH [Suspect]
     Active Substance: ESTRADIOL\NORETHINDRONE ACETATE
     Indication: HOT FLUSH
     Dosage: 0.05/0.14 MG PER DAY
     Route: 062

REACTIONS (3)
  - Product adhesion issue [Recovered/Resolved]
  - Wrong technique in product usage process [Recovered/Resolved]
  - Therapeutic product ineffective [Not Recovered/Not Resolved]
